FAERS Safety Report 10073635 (Version 1)
Quarter: 2014Q2

REPORT INFORMATION
  Report Type: Spontaneous
  Country: US (occurrence: US)
  Receive Date: 20140411
  Receipt Date: 20140411
  Transmission Date: 20141212
  Serious: Yes (Other)
  Sender: FDA-Public Use
  Company Number: US-ACTAVIS-2014-07083

PATIENT
  Sex: 0

DRUGS (4)
  1. NAPROXEN (WATSON LABORATORIES) [Suspect]
     Indication: PRODUCT USED FOR UNKNOWN INDICATION
     Dosage: 440 MG, UNKNOWN
     Route: 065
  2. KETOROLAC (WATSON LABORATORIES) [Suspect]
     Indication: PRODUCT USED FOR UNKNOWN INDICATION
     Dosage: UNK
     Route: 065
  3. ACETYLSALICYLIC ACID (UNKNOWN) [Suspect]
     Indication: PRODUCT USED FOR UNKNOWN INDICATION
     Dosage: 650 MG, UNKNOWN
     Route: 065
  4. IBUPROFEN (AMALLC) [Suspect]
     Indication: PRODUCT USED FOR UNKNOWN INDICATION
     Dosage: UNK
     Route: 065

REACTIONS (1)
  - Asthma [Unknown]
